FAERS Safety Report 5190071-X (Version None)
Quarter: 2006Q4

REPORT INFORMATION
  Report Type: 
  Country: None (occurrence: None)
  Receive Date: 20061222
  Receipt Date: 20061219
  Transmission Date: 20070319
  Serious: Yes (Life-Threatening, Other)
  Sender: FDA-Public Use
  Company Number: PHRM2006FR03354

PATIENT
  Age: 34 Year
  Sex: Female
  Weight: 90 kg

DRUGS (2)
  1. CEFAZOLIN SODIUM [Concomitant]
  2. SYNTOCINON [Suspect]
     Dosage: 2 CONSECUTIVE INJECTIONS
     Route: 042
     Dates: start: 20061028, end: 20061028

REACTIONS (7)
  - ANAPHYLACTIC SHOCK [None]
  - BRADYCARDIA FOETAL [None]
  - BRONCHOSPASM [None]
  - CAESAREAN SECTION [None]
  - CARDIAC OUTPUT DECREASED [None]
  - HYPOTENSION [None]
  - URTICARIA [None]
